FAERS Safety Report 9547015 (Version 1)
Quarter: 2013Q2

REPORT INFORMATION
  Report Type: Spontaneous
  Country: US (occurrence: None)
  Receive Date: 20130606
  Receipt Date: 20130606
  Transmission Date: 20140414
  Serious: No
  Sender: FDA-Public Use
  Company Number: 2013PROUSA02630

PATIENT
  Age: 58 Year
  Sex: Male
  Weight: 111.1 kg

DRUGS (2)
  1. PROVENGE (SIPULEUCEL-T) SUSPENSION, 250 ML [Suspect]
     Indication: PROSTATE CANCER METASTATIC
     Dosage: 250 ML, SINGLE, INTRAVENOUS
     Route: 042
     Dates: start: 20130204, end: 20130204
  2. ZOMETA (ZOLEDRONIC ACID) [Concomitant]

REACTIONS (1)
  - Culture positive [None]
